FAERS Safety Report 8390961-0 (Version None)
Quarter: 2012Q2

REPORT INFORMATION
  Report Type: 
  Country: None (occurrence: None)
  Receive Date: 20120529
  Receipt Date: 20120523
  Transmission Date: 20120825
  Serious: Yes (Other)
  Sender: FDA-Public Use
  Company Number: PHHY2012BR023832

PATIENT
  Age: 58 Year
  Sex: Male

DRUGS (10)
  1. CERTICAN [Suspect]
     Indication: RENAL TRANSPLANT
     Dosage: 0.75 MG AND 0.50 MG, BID
     Dates: start: 20110504
  2. MYCOPHENOLATE MOFETIL [Concomitant]
     Dosage: UNK UKN, UNK
  3. LEVOTHYROXINE SODIUM [Concomitant]
  4. TACROLIMUS [Concomitant]
     Indication: IMMUNOSUPPRESSION
  5. ATORVASTATIN CALCIUM [Concomitant]
  6. ATENOLOL [Concomitant]
  7. ALLOPURINOL [Concomitant]
  8. BASILIXIMAB [Suspect]
     Indication: RENAL TRANSPLANT
  9. PREDNISONE [Concomitant]
     Indication: IMMUNOSUPPRESSION
     Dosage: UNK UKN, UNK
  10. RANITIDINE [Concomitant]

REACTIONS (3)
  - JOINT EFFUSION [None]
  - AMYLASE INCREASED [None]
  - DEEP VEIN THROMBOSIS [None]
